FAERS Safety Report 11528847 (Version 1)
Quarter: 2015Q3

REPORT INFORMATION
  Report Type: Spontaneous
  Country: US (occurrence: US)
  Receive Date: 20150921
  Receipt Date: 20150921
  Transmission Date: 20151125
  Serious: No
  Sender: FDA-Public Use
  Company Number: US-PFIZER INC-2015309222

PATIENT
  Sex: Female

DRUGS (2)
  1. PREMARIN [Suspect]
     Active Substance: ESTROGENS, CONJUGATED
     Indication: HYPERAESTHESIA
     Dosage: UNK, SINGLE
     Dates: start: 201502, end: 2015
  2. PREMARIN [Suspect]
     Active Substance: ESTROGENS, CONJUGATED
     Indication: VULVOVAGINAL DRYNESS

REACTIONS (5)
  - Tremor [Unknown]
  - Wrong technique in product usage process [Unknown]
  - Headache [Unknown]
  - Dizziness [Unknown]
  - Vulvovaginal discomfort [Unknown]

NARRATIVE: CASE EVENT DATE: 2015
